FAERS Safety Report 7058324-8 (Version None)
Quarter: 2010Q4

REPORT INFORMATION
  Report Type: 
  Country: None (occurrence: None)
  Receive Date: 20101021
  Receipt Date: 20101021
  Transmission Date: 20110411
  Serious: No
  Sender: FDA-Public Use
  Company Number: None

PATIENT
  Age: 63 Year
  Sex: Male
  Weight: 88 kg

DRUGS (13)
  1. VANCOMYCIN [Suspect]
     Indication: DEVICE RELATED INFECTION
     Dates: start: 20100923, end: 20100926
  2. ZYPREXA [Suspect]
     Indication: AGITATION
     Dosage: 5 MG QDAY PO
     Route: 048
     Dates: start: 20100922, end: 20100926
  3. DOCUSATE [Concomitant]
  4. LOPRESSOR [Concomitant]
  5. LOVENOX [Concomitant]
  6. MEGACE [Concomitant]
  7. NORVASC [Concomitant]
  8. PRILOSEC [Concomitant]
  9. ROXANE [Concomitant]
  10. SYNTHROID [Concomitant]
  11. ATIVAN [Concomitant]
  12. NORCO [Concomitant]
  13. TYLENOL [Concomitant]

REACTIONS (1)
  - NEUTROPHIL COUNT DECREASED [None]
